FAERS Safety Report 7459693-7 (Version None)
Quarter: 2011Q2

REPORT INFORMATION
  Report Type: 
  Country: None (occurrence: None)
  Receive Date: 20110505
  Receipt Date: 20110422
  Transmission Date: 20111010
  Serious: Yes (Other)
  Sender: FDA-Public Use
  Company Number: US-ELI_LILLY_AND_COMPANY-US201007000401

PATIENT
  Sex: Female

DRUGS (3)
  1. FORTEO [Suspect]
     Indication: OSTEOPOROSIS
     Dosage: 20 UG, DAILY (1/D)
     Route: 065
     Dates: start: 20100610
  2. FORTEO [Suspect]
     Dosage: 20 UG, DAILY (1/D)
     Route: 065
  3. FORTEO [Suspect]
     Dosage: 20 UG, QD

REACTIONS (20)
  - INJECTION SITE URTICARIA [None]
  - ARTHRALGIA [None]
  - CHONDROPATHY [None]
  - AORTIC ANEURYSM [None]
  - INJECTION SITE HAEMATOMA [None]
  - ASTHENIA [None]
  - BLOOD CALCIUM INCREASED [None]
  - DIZZINESS [None]
  - URTICARIA [None]
  - HEART RATE DECREASED [None]
  - INJECTION SITE REACTION [None]
  - BLOOD PRESSURE DECREASED [None]
  - DYSSTASIA [None]
  - INFLUENZA LIKE ILLNESS [None]
  - VITAMIN D DECREASED [None]
  - BLOOD CALCIUM DECREASED [None]
  - NECK PAIN [None]
  - FEELING HOT [None]
  - MOBILITY DECREASED [None]
  - THYROID DISORDER [None]
